FAERS Safety Report 4971518-8 (Version None)
Quarter: 2006Q2

REPORT INFORMATION
  Report Type: 
  Country: None (occurrence: None)
  Receive Date: 20060406
  Receipt Date: 20060328
  Transmission Date: 20061013
  Serious: Yes (Death, Life-Threatening, Other)
  Sender: FDA-Public Use
  Company Number: 223509

PATIENT
  Age: 71 Year
  Sex: Male

DRUGS (10)
  1. GRTPA(ALTEPLASE) PWDR + SOLVENT, INFUSION SOLN [Suspect]
     Indication: CEREBRAL ARTERY EMBOLISM
     Dosage: 41.4 MG, INTRAVENOUS
     Route: 042
     Dates: start: 20060110, end: 20060110
  2. ADALAT CC [Concomitant]
  3. DILTIAZEM HYDROCHLORIDE [Concomitant]
  4. LACTEC (ELECTROLYTE SOLUTION NOS) [Concomitant]
  5. GLYCERIN (GLYCERIN) [Concomitant]
  6. FRUCTOSE (FRUCTOSE) [Concomitant]
  7. HUMULIN R [Concomitant]
  8. LASIX [Concomitant]
  9. VITAMIN D (CHOLECALCIFEROL) [Concomitant]
  10. DOPAMINE HCL [Concomitant]

REACTIONS (5)
  - BLOOD GLUCOSE INCREASED [None]
  - BLOOD PRESSURE INCREASED [None]
  - HAEMORRHAGIC CEREBRAL INFARCTION [None]
  - RENAL FAILURE ACUTE [None]
  - SUBARACHNOID HAEMORRHAGE [None]
